FAERS Safety Report 10013692 (Version 1)
Quarter: 2014Q1

REPORT INFORMATION
  Report Type: Spontaneous
  Country: GB (occurrence: GB)
  Receive Date: 20140315
  Receipt Date: 20140315
  Transmission Date: 20141002
  Serious: Yes (Other)
  Sender: FDA-Public Use
  Company Number: GB-ASTRAZENECA-2014SE16152

PATIENT
  Age: 71 Year
  Sex: Female

DRUGS (2)
  1. CRESTOR [Suspect]
     Indication: HYPERCHOLESTEROLAEMIA
     Dosage: ROSUVASTATIN
     Route: 048
  2. CRESTOR [Suspect]
     Indication: HYPERCHOLESTEROLAEMIA
     Route: 048
     Dates: start: 20131222

REACTIONS (5)
  - Inflammation [Recovering/Resolving]
  - Product substitution issue [Unknown]
  - Erythema [Recovering/Resolving]
  - Swelling face [Recovering/Resolving]
  - Pruritus [Recovering/Resolving]
